FAERS Safety Report 9227362 (Version 3)
Quarter: 2013Q2

REPORT INFORMATION
  Report Type: Spontaneous
  Country: DE (occurrence: None)
  Receive Date: 20130410
  Receipt Date: 20130520
  Transmission Date: 20140414
  Serious: Yes (Life-Threatening, Other)
  Sender: FDA-Public Use
  Company Number: 1663507

PATIENT
  Age: 60 Year
  Sex: Male
  Weight: 64 kg

DRUGS (5)
  1. OXALIPLATIN [Suspect]
     Indication: RECTAL CANCER
     Route: 042
     Dates: start: 20130318
  2. METAMIZOLE [Concomitant]
  3. GRANISETRON [Concomitant]
  4. EMEND [Concomitant]
  5. FOLFOX-4 [Concomitant]

REACTIONS (6)
  - Rash [None]
  - Rash pruritic [None]
  - Circulatory collapse [None]
  - Infusion related reaction [None]
  - Chills [None]
  - Pulse absent [None]
